FAERS Safety Report 6735047-3 (Version None)
Quarter: 2010Q2

REPORT INFORMATION
  Report Type: 
  Country: None (occurrence: None)
  Receive Date: 20100521
  Receipt Date: 20100510
  Transmission Date: 20101027
  Serious: No
  Sender: FDA-Public Use
  Company Number: GB-JNJFOC-20100405923

PATIENT
  Sex: Female
  Weight: 49 kg

DRUGS (7)
  1. BLINDED; USTEKINUMA [Suspect]
     Route: 042
  2. BLINDED; USTEKINUMA [Suspect]
     Indication: CROHN'S DISEASE
     Route: 042
  3. PLACEBO [Suspect]
     Indication: CROHN'S DISEASE
     Route: 042
  4. CALCI CHEW D [Concomitant]
     Route: 048
  5. PENTASA [Concomitant]
     Indication: COLITIS ULCERATIVE
     Route: 048
  6. OMEPRAZOLE [Concomitant]
     Indication: COLITIS ULCERATIVE
     Route: 048
  7. FERROUS SULFATE TAB [Concomitant]
     Indication: COLITIS ULCERATIVE
     Route: 048

REACTIONS (1)
  - URINARY TRACT INFECTION [None]
